FAERS Safety Report 11931329 (Version 1)
Quarter: 2016Q1

REPORT INFORMATION
  Report Type: Spontaneous
  Country: US (occurrence: US)
  Receive Date: 20160120
  Receipt Date: 20160120
  Transmission Date: 20160526
  Serious: Yes (Other)
  Sender: FDA-Public Use
  Company Number: US-CONCORDIA PHARMACEUTICALS INC.-CO-PL-US-2016-009

PATIENT
  Age: 54 Year
  Sex: Female

DRUGS (1)
  1. HYDROXYCHLOROQUINE SULFATE. [Suspect]
     Active Substance: HYDROXYCHLOROQUINE SULFATE
     Indication: SYSTEMIC LUPUS ERYTHEMATOSUS

REACTIONS (10)
  - Optical coherence tomography abnormal [None]
  - Toxicity to various agents [None]
  - Blindness [Unknown]
  - Visual field defect [None]
  - Cystoid macular oedema [None]
  - Retinal pigment epitheliopathy [None]
  - Retinopathy [None]
  - Maculopathy [Recovering/Resolving]
  - Visual acuity reduced [None]
  - Retinal degeneration [None]
